FAERS Safety Report 9679298 (Version 1)
Quarter: 2013Q4

REPORT INFORMATION
  Report Type: Spontaneous
  Country: US (occurrence: US)
  Receive Date: 20131109
  Receipt Date: 20131109
  Transmission Date: 20140711
  Serious: No
  Sender: FDA-Public Use
  Company Number: US-SANOFI-AVENTIS-2012SA075601

PATIENT
  Age: 63 Year
  Sex: Female
  Weight: 73 kg

DRUGS (5)
  1. ALLEGRA-D [Suspect]
     Indication: NASAL CONGESTION
     Route: 048
     Dates: start: 1997, end: 20121008
  2. ALLEGRA-D [Suspect]
     Indication: SNEEZING
     Route: 048
     Dates: start: 1997, end: 20121008
  3. ALLEGRA-D [Suspect]
     Indication: LACRIMATION INCREASED
     Route: 048
     Dates: start: 1997, end: 20121008
  4. ALLEGRA-D [Suspect]
     Indication: NASAL DISCOMFORT
     Route: 048
     Dates: start: 1997, end: 20121008
  5. ALLEGRA-D [Suspect]
     Indication: THROAT IRRITATION
     Route: 048
     Dates: start: 1997, end: 20121008

REACTIONS (6)
  - Nasal congestion [Not Recovered/Not Resolved]
  - Drug ineffective [Unknown]
  - Sneezing [Not Recovered/Not Resolved]
  - Lacrimation increased [Not Recovered/Not Resolved]
  - Nasal discomfort [Not Recovered/Not Resolved]
  - Throat irritation [Not Recovered/Not Resolved]
